FAERS Safety Report 5943451-6 (Version None)
Quarter: 2008Q4

REPORT INFORMATION
  Report Type: 
  Country: None (occurrence: None)
  Receive Date: 20081105
  Receipt Date: 20081105
  Transmission Date: 20090506
  Serious: No
  Sender: FDA-Public Use
  Company Number: None

PATIENT
  Sex: Female
  Weight: 61.2356 kg

DRUGS (1)
  1. BONIVA [Suspect]
     Indication: OSTEOPENIA
     Dosage: 1 TABLET MONTHLY PO
     Route: 048
     Dates: start: 20061201, end: 20080801

REACTIONS (7)
  - DYSPHONIA [None]
  - EYELID OEDEMA [None]
  - FEELING ABNORMAL [None]
  - HYPOAESTHESIA [None]
  - MOBILITY DECREASED [None]
  - NAIL DISORDER [None]
  - VAGINAL DISCHARGE [None]
